FAERS Safety Report 6904082-4 (Version None)
Quarter: 2010Q3

REPORT INFORMATION
  Report Type: 
  Country: None (occurrence: None)
  Receive Date: 20100804
  Receipt Date: 20090306
  Transmission Date: 20110219
  Serious: No
  Sender: FDA-Public Use
  Company Number: US-PFIZER INC-2009179918

PATIENT
  Sex: Female
  Weight: 79.4 kg

DRUGS (10)
  1. LYRICA [Suspect]
     Indication: PAIN IN EXTREMITY
     Dosage: 50 MG, 3X/DAY
     Dates: start: 20090201
  2. ARICEPT [Concomitant]
     Dosage: UNK
  3. MECLIZINE [Concomitant]
     Dosage: UNK
  4. EXELON [Concomitant]
     Dosage: UNK
  5. ANTI-DIABETICS [Concomitant]
     Indication: DIABETES MELLITUS
     Dosage: UNK
  6. ZOLOFT [Concomitant]
     Dosage: UNK
  7. DIAZEPAM [Concomitant]
     Dosage: UNK
  8. OXYCODONE [Concomitant]
     Dosage: UNK
  9. LOTREL [Concomitant]
     Indication: HYPERTENSION
     Dosage: UNK
  10. LASIX [Concomitant]
     Dosage: UNK

REACTIONS (1)
  - OEDEMA PERIPHERAL [None]
